FAERS Safety Report 8422956-2 (Version None)
Quarter: 2012Q2

REPORT INFORMATION
  Report Type: 
  Country: None (occurrence: None)
  Receive Date: 20120608
  Receipt Date: 20120529
  Transmission Date: 20120825
  Serious: Yes (Hospitalization)
  Sender: FDA-Public Use
  Company Number: JP-GLAXOSMITHKLINE-B0805395A

PATIENT
  Age: 83 Year
  Sex: Female

DRUGS (2)
  1. VALTREX [Suspect]
     Indication: HERPES ZOSTER
     Dosage: 3000MG PER DAY
     Route: 048
     Dates: start: 20120525, end: 20120526
  2. VIDARABINE [Concomitant]
     Indication: HERPES ZOSTER
     Route: 061
     Dates: start: 20120525, end: 20120526

REACTIONS (4)
  - NEPHROPATHY [None]
  - ENCEPHALOPATHY [None]
  - AGITATION [None]
  - DIZZINESS [None]
